FAERS Safety Report 18195001 (Version 1)
Quarter: 2020Q3

REPORT INFORMATION
  Report Type: Spontaneous
  Country: JP (occurrence: JP)
  Receive Date: 20200826
  Receipt Date: 20200826
  Transmission Date: 20201103
  Serious: Yes (Death, Other)
  Sender: FDA-Public Use
  Company Number: JP-ASTELLAS-2020JP012274

PATIENT
  Age: 26 Year
  Sex: Female

DRUGS (6)
  1. BLINCYTO [Suspect]
     Active Substance: BLINATUMOMAB
     Indication: ACUTE LYMPHOCYTIC LEUKAEMIA RECURRENT
     Dosage: 28 UG/DAY, UNKNOWN FREQ.
     Route: 041
     Dates: start: 20200325, end: 2020
  2. BESPONSA [Suspect]
     Active Substance: INOTUZUMAB OZOGAMICIN
     Indication: ACUTE LYMPHOCYTIC LEUKAEMIA RECURRENT
     Dosage: UNK UNK, UNKNOWN FREQ.
     Route: 042
  3. CELLCEPT [Suspect]
     Active Substance: MYCOPHENOLATE MOFETIL\MYCOPHENOLATE MOFETIL HYDROCHLORIDE
     Indication: PRODUCT USED FOR UNKNOWN INDICATION
     Dosage: UNK UNK, UNKNOWN FREQ.
     Route: 048
  4. PROGRAF [Suspect]
     Active Substance: TACROLIMUS
     Indication: ALLOGENIC STEM CELL TRANSPLANTATION
     Dosage: UNK UNK, UNKNOWN FREQ.
     Route: 041
  5. PREDNISOLONE. [Concomitant]
     Active Substance: PREDNISOLONE
     Indication: CYTOKINE RELEASE SYNDROME
     Dosage: UNK UNK, UNKNOWN FREQ.
     Route: 065
  6. BLINCYTO [Suspect]
     Active Substance: BLINATUMOMAB
     Dosage: 28 UG/DAY, UNKNOWN FREQ.
     Route: 041
     Dates: start: 2020, end: 20200509

REACTIONS (4)
  - Cytokine release syndrome [Recovered/Resolved]
  - Venoocclusive liver disease [Unknown]
  - Sepsis [Fatal]
  - Oral disorder [Unknown]

NARRATIVE: CASE EVENT DATE: 20200327
